FAERS Safety Report 7931528-5 (Version None)
Quarter: 2011Q4

REPORT INFORMATION
  Report Type: 
  Country: None (occurrence: None)
  Receive Date: 20111121
  Receipt Date: 20111121
  Transmission Date: 20120403
  Serious: No
  Sender: FDA-Public Use
  Company Number: None

PATIENT
  Age: 36 Year
  Sex: Female
  Weight: 74.842 kg

DRUGS (1)
  1. MONISTAT 7 [Suspect]
     Indication: FUNGAL INFECTION
     Dosage: 1 APPLICATOR
     Route: 067
     Dates: start: 20111117, end: 20111117

REACTIONS (6)
  - PRURITUS [None]
  - VAGINAL HAEMORRHAGE [None]
  - PAIN [None]
  - SWELLING [None]
  - OEDEMA GENITAL [None]
  - GAIT DISTURBANCE [None]
